FAERS Safety Report 17279088 (Version 1)
Quarter: 2020Q1

REPORT INFORMATION
  Report Type: Spontaneous
  Country: CZ (occurrence: CZ)
  Receive Date: 20200116
  Receipt Date: 20200116
  Transmission Date: 20200409
  Serious: Yes (Other)
  Sender: FDA-Public Use
  Company Number: CZ-FRESENIUS KABI-FK202000493

PATIENT
  Sex: Male

DRUGS (4)
  1. FLUOROURACIL. [Suspect]
     Active Substance: FLUOROURACIL
     Indication: DISEASE PROGRESSION
  2. IRINOTECAN (MANUFACTURER UNKNOWN) [Suspect]
     Active Substance: IRINOTECAN
     Indication: DISEASE PROGRESSION
     Route: 065
  3. CETUXIMAB. [Suspect]
     Active Substance: CETUXIMAB
     Indication: DISEASE PROGRESSION
  4. LEUCOVORIN CALCIUM (MANUFACTURER UNKNOWN) [Suspect]
     Active Substance: LEUCOVORIN CALCIUM
     Indication: DISEASE PROGRESSION
     Route: 065

REACTIONS (5)
  - Fatigue [Unknown]
  - Weight decreased [Unknown]
  - Skin toxicity [Unknown]
  - Alopecia [Unknown]
  - Diarrhoea [Unknown]
